FAERS Safety Report 20350179 (Version 1)
Quarter: 2022Q1

REPORT INFORMATION
  Report Type: Spontaneous
  Country: US (occurrence: None)
  Receive Date: 20220119
  Receipt Date: 20220119
  Transmission Date: 20220423
  Serious: Yes (Other)
  Sender: FDA-Public Use
  Company Number: None

PATIENT
  Age: 74 Year
  Sex: Male
  Weight: 128 kg

DRUGS (2)
  1. MENTHOL\METHYL SALICYLATE [Suspect]
     Active Substance: MENTHOL\METHYL SALICYLATE
     Indication: Pain
     Dates: start: 20210927, end: 20211021
  2. LIDOCAINE PAIN RELIEF GEL PATCH [Suspect]
     Active Substance: LIDOCAINE
     Indication: Pain
     Dates: start: 20210927, end: 20211021

REACTIONS (2)
  - Application site vesicles [None]
  - Application site rash [None]

NARRATIVE: CASE EVENT DATE: 20211016
